FAERS Safety Report 4278883-8 (Version None)
Quarter: 2004Q1

REPORT INFORMATION
  Report Type: 
  Country: None (occurrence: None)
  Receive Date: 20040122
  Receipt Date: 20040122
  Transmission Date: 20041129
  Serious: Yes (Life-Threatening, Hospitalization)
  Sender: FDA-Public Use
  Company Number: None

PATIENT
  Age: 85 Year
  Sex: Female
  Weight: 63 kg

DRUGS (2)
  1. WARFARIN SODIUM [Suspect]
     Indication: ATRIAL FIBRILLATION
     Dosage: 0.5 MG DAILY ORAL
     Route: 048
     Dates: start: 20040102, end: 20040111
  2. AZITHROMYCIN [Suspect]
     Indication: ATRIAL FIBRILLATION
     Dosage: 500 MG DAILY ORAL
     Route: 048
     Dates: start: 20040111, end: 20040115

REACTIONS (1)
  - INTERNATIONAL NORMALISED RATIO INCREASED [None]
